FAERS Safety Report 7136476-9 (Version None)
Quarter: 2010Q4

REPORT INFORMATION
  Report Type: 
  Country: None (occurrence: None)
  Receive Date: 20101206
  Receipt Date: 20060706
  Transmission Date: 20110411
  Serious: Yes (Death)
  Sender: FDA-Public Use
  Company Number: PT-ACTELION-A-CH2006-12551

PATIENT

DRUGS (3)
  1. BOSENTAN TABLET 62.5 MG EU [Suspect]
     Indication: PULMONARY HYPERTENSION
     Route: 048
  2. ILOPROST [Concomitant]
  3. ANTITHROMBOTIC AGENTS [Concomitant]

REACTIONS (1)
  - DEATH [None]
